FAERS Safety Report 17080983 (Version 3)
Quarter: 2019Q4

REPORT INFORMATION
  Report Type: Report from Study
  Country: GB (occurrence: GB)
  Receive Date: 20191127
  Receipt Date: 20191227
  Transmission Date: 20200122
  Serious: Yes (Other)
  Sender: FDA-Public Use
  Company Number: GB-AVEXISPRA-CTR-AVXS12019-0031

PATIENT
  Age: 6 Month
  Sex: Male
  Weight: 6.3 kg

DRUGS (1)
  1. AVXS-101 [Suspect]
     Active Substance: ONASEMNOGENE ABEPARVOVEC
     Indication: SPINAL MUSCULAR ATROPHY
     Dosage: 17.4 MILLILITER, SINGLE
     Route: 042
     Dates: start: 20190514, end: 20190514

REACTIONS (1)
  - Hypertension [Recovered/Resolved]

NARRATIVE: CASE EVENT DATE: 20190613
